FAERS Safety Report 7807554-3 (Version None)
Quarter: 2011Q4

REPORT INFORMATION
  Report Type: 
  Country: None (occurrence: None)
  Receive Date: 20111011
  Receipt Date: 20110930
  Transmission Date: 20120403
  Serious: Yes (Hospitalization)
  Sender: FDA-Public Use
  Company Number: FR-GLAXOSMITHKLINE-B0751880A

PATIENT
  Sex: Female
  Weight: 50 kg

DRUGS (3)
  1. ARIXTRA [Suspect]
     Indication: PULMONARY EMBOLISM
     Dosage: 7.5MG PER DAY
     Route: 058
     Dates: start: 20110822, end: 20110829
  2. COUMADIN [Concomitant]
     Indication: PULMONARY EMBOLISM
     Dosage: 7MG PER DAY
     Route: 048
     Dates: start: 20110823, end: 20110829
  3. OESTROPROGESTATIVE CONTRACEPTION [Concomitant]
     Dates: end: 20110101

REACTIONS (2)
  - INTRA-ABDOMINAL HAEMATOMA [None]
  - PERITONEAL HAEMORRHAGE [None]
